FAERS Safety Report 13073268 (Version 3)
Quarter: 2017Q1

REPORT INFORMATION
  Report Type: Spontaneous
  Country: CN (occurrence: CN)
  Receive Date: 20161229
  Receipt Date: 20170118
  Transmission Date: 20170428
  Serious: Yes (Hospitalization, Other)
  Sender: FDA-Public Use
  Company Number: CN-ELI_LILLY_AND_COMPANY-CN201505003285

PATIENT
  Age: 46 Year
  Sex: Female
  Weight: 50 kg

DRUGS (1)
  1. CYMBALTA [Suspect]
     Active Substance: DULOXETINE HYDROCHLORIDE
     Indication: DIZZINESS
     Dosage: 60 MG, QD
     Route: 048
     Dates: start: 201504, end: 2015

REACTIONS (15)
  - Alopecia [Recovering/Resolving]
  - Blood creatinine increased [Recovering/Resolving]
  - Tic [Not Recovered/Not Resolved]
  - Transaminases increased [Recovering/Resolving]
  - Glaucoma [Recovering/Resolving]
  - Hepatic cirrhosis [Recovering/Resolving]
  - Asthenia [Not Recovered/Not Resolved]
  - Off label use [Recovered/Resolved]
  - Feeling abnormal [Recovering/Resolving]
  - Epilepsy [Recovering/Resolving]
  - Lethargy [Recovering/Resolving]
  - Muscle spasms [Recovering/Resolving]
  - Abasia [Recovering/Resolving]
  - Hypotonia [Not Recovered/Not Resolved]
  - Vasoconstriction [Not Recovered/Not Resolved]

NARRATIVE: CASE EVENT DATE: 2015
